FAERS Safety Report 9486007 (Version 1)
Quarter: 2013Q3

REPORT INFORMATION
  Report Type: Spontaneous
  Country: US (occurrence: None)
  Receive Date: 20130827
  Receipt Date: 20130827
  Transmission Date: 20140515
  Serious: Yes (Other)
  Sender: FDA-Public Use
  Company Number: None

PATIENT
  Sex: 0

DRUGS (1)
  1. AVASTIN [Suspect]
     Route: 031
     Dates: start: 201212

REACTIONS (5)
  - Local swelling [None]
  - Joint swelling [None]
  - Erythema [None]
  - Pain in extremity [None]
  - Arthralgia [None]
